FAERS Safety Report 20364285 (Version 1)
Quarter: 2022Q1

REPORT INFORMATION
  Report Type: Spontaneous
  Country: US (occurrence: None)
  Receive Date: 20220121
  Receipt Date: 20220121
  Transmission Date: 20220424
  Serious: Yes (Death)
  Sender: FDA-Public Use
  Company Number: None

PATIENT
  Age: 77 Year
  Sex: Male

DRUGS (12)
  1. ESBRIET [Suspect]
     Active Substance: PIRFENIDONE
     Indication: Idiopathic pulmonary fibrosis
     Dosage: TAKE 1 TABLET (801 MG) BY MOUTH (THREE) TIMES DAILY?
     Route: 048
     Dates: start: 20190207
  2. ESBRIET [Suspect]
     Active Substance: PIRFENIDONE
     Dosage: FREQUENCY : 3 TIMES A WEEK;?
     Route: 048
  3. ASPIRIN [Concomitant]
  4. BENICAR HCT [Concomitant]
  5. CLONODINE [Concomitant]
  6. FUROSEMIDE [Concomitant]
     Active Substance: FUROSEMIDE
  7. GABAPATIN [Concomitant]
  8. HUMULIN [Concomitant]
  9. LANTUS [Concomitant]
  10. METFORMIN [Concomitant]
  11. SIMASTATIN [Concomitant]
  12. TYZEKA [Concomitant]
     Active Substance: TELBIVUDINE

REACTIONS (1)
  - Death [None]

NARRATIVE: CASE EVENT DATE: 20220107
